FAERS Safety Report 5882541-3 (Version None)
Quarter: 2008Q3

REPORT INFORMATION
  Report Type: 
  Country: None (occurrence: None)
  Receive Date: 20080913
  Receipt Date: 20080807
  Transmission Date: 20090109
  Serious: No
  Sender: FDA-Public Use
  Company Number: US-ABBOTT-08P-163-0469514-00

PATIENT
  Sex: Female
  Weight: 54.48 kg

DRUGS (11)
  1. HUMIRA [Suspect]
     Indication: RHEUMATOID ARTHRITIS
     Route: 058
     Dates: start: 20080709, end: 20080723
  2. HUMIRA [Suspect]
     Route: 058
  3. FOLIC ACID [Concomitant]
     Indication: VITAMIN SUPPLEMENTATION
     Route: 048
     Dates: start: 20070101
  4. PREDNISONE TAB [Concomitant]
     Indication: RHEUMATOID ARTHRITIS
     Route: 048
     Dates: start: 19880101
  5. LEVOTHYROXINE SODIUM [Concomitant]
     Indication: HYPOTHYROIDISM
     Route: 048
     Dates: start: 19930101
  6. SERTRALINE [Concomitant]
     Indication: DEPRESSION
     Dosage: GENERIC
     Route: 048
     Dates: start: 20030101
  7. ZOLPIDEM [Concomitant]
     Indication: SLEEP DISORDER THERAPY
     Route: 048
     Dates: start: 20080201
  8. ERGOCALCIFEROL [Concomitant]
     Indication: VITAMIN SUPPLEMENTATION
     Route: 048
     Dates: start: 20060101
  9. CYCLOSPORINE [Concomitant]
     Indication: DRY EYE
     Dosage: 1 DROP IN EACH EYE EVERY 12 HOURS
     Route: 048
     Dates: start: 20030101
  10. ALENDRONATE SODIUM [Concomitant]
     Indication: PROPHYLAXIS
     Route: 048
     Dates: start: 20080501
  11. AZITHROMYCIN [Concomitant]
     Route: 048
     Dates: start: 20080718, end: 20080722

REACTIONS (2)
  - FEELING HOT [None]
  - PAIN [None]
